FAERS Safety Report 7805666-1 (Version None)
Quarter: 2011Q4

REPORT INFORMATION
  Report Type: 
  Country: None (occurrence: None)
  Receive Date: 20111011
  Receipt Date: 20111004
  Transmission Date: 20120403
  Serious: Yes (Hospitalization, Other)
  Sender: FDA-Public Use
  Company Number: FR-BRISTOL-MYERS SQUIBB COMPANY-16137515

PATIENT
  Age: 77 Year
  Sex: Female

DRUGS (8)
  1. STRUCTUM [Concomitant]
     Route: 048
  2. PANTOPRAZOLE SODIUM [Concomitant]
     Route: 048
  3. AMIODARONE HCL [Concomitant]
  4. COUMADIN [Suspect]
     Dosage: 1DF=1.5 PER DAY UNIT NOT SPECIFIED
     Route: 048
  5. BETAHISTINE HCL [Concomitant]
  6. FLECAINIDE ACETATE [Concomitant]
     Route: 048
  7. ESCITALOPRAM OXALATE [Concomitant]
     Route: 048
  8. KORETIC [Concomitant]
     Dosage: 1DF=20MG/12.5MG
     Route: 048

REACTIONS (5)
  - INTERNATIONAL NORMALISED RATIO INCREASED [None]
  - VOMITING [None]
  - NAUSEA [None]
  - HAEMATOMA [None]
  - FALL [None]
